FAERS Safety Report 9555660 (Version 1)
Quarter: 2013Q3

REPORT INFORMATION
  Report Type: Spontaneous
  Country: US (occurrence: None)
  Receive Date: 20130916
  Receipt Date: 20130916
  Transmission Date: 20140515
  Serious: Yes (Other)
  Sender: FDA-Public Use
  Company Number: HRA-CDB20130152

PATIENT
  Age: 43 Year
  Sex: Female
  Weight: 99.79 kg

DRUGS (1)
  1. ELLA [Suspect]
     Indication: POST COITAL CONTRACEPTION
     Route: 048
     Dates: start: 20130603, end: 20130603

REACTIONS (2)
  - Nausea [None]
  - Dyspepsia [None]
